FAERS Safety Report 8211625-X (Version None)
Quarter: 2012Q1

REPORT INFORMATION
  Report Type: 
  Country: None (occurrence: None)
  Receive Date: 20120315
  Receipt Date: 20120307
  Transmission Date: 20120608
  Serious: Yes (Hospitalization)
  Sender: FDA-Public Use
  Company Number: CA-JNJFOC-20110406284

PATIENT
  Sex: Male

DRUGS (32)
  1. VENLAFAXINE [Concomitant]
     Route: 048
     Dates: start: 20081201, end: 20110331
  2. NASONEX [Concomitant]
     Indication: SINUS CONGESTION
     Route: 055
     Dates: start: 20110311, end: 20110320
  3. ABIRATERONE ACETATE [Suspect]
     Route: 048
  4. PREDNISONE TAB [Suspect]
     Indication: PROSTATE CANCER METASTATIC
     Route: 048
     Dates: start: 20100218
  5. EXTRA STRENGTH TYLENOL [Concomitant]
     Route: 048
     Dates: start: 20110321
  6. ABIRATERONE ACETATE [Suspect]
     Indication: PROSTATE CANCER METASTATIC
     Route: 048
     Dates: start: 20100218, end: 20110323
  7. EXTRA STRENGTH TYLENOL [Concomitant]
     Route: 048
     Dates: start: 20110328, end: 20110330
  8. TYLENOL W/ CODEINE NO. 3 [Concomitant]
     Indication: HEADACHE
     Route: 048
     Dates: start: 20110131, end: 20110320
  9. ENOXAPARIN [Concomitant]
     Indication: DEEP VEIN THROMBOSIS
     Route: 058
     Dates: start: 20101226
  10. CODEINE SULFATE [Concomitant]
     Indication: ABDOMINAL PAIN
     Route: 048
     Dates: start: 20110311, end: 20110320
  11. EXTRA STRENGTH TYLENOL [Concomitant]
     Indication: HEADACHE
     Route: 048
     Dates: start: 20110328, end: 20110330
  12. EXTRA STRENGTH TYLENOL [Concomitant]
     Route: 048
     Dates: start: 20110328, end: 20110330
  13. IBUPROFEN [Concomitant]
     Indication: ARTHRALGIA
     Route: 048
     Dates: start: 20090201
  14. CALCIUM CARBONATE [Concomitant]
     Indication: MEDICAL DIET
     Route: 048
     Dates: start: 20080101
  15. SODIUM CHLORIDE [Concomitant]
     Indication: DECREASED APPETITE
     Route: 042
     Dates: start: 20110313, end: 20110313
  16. LEVOFLOXACIN [Concomitant]
     Indication: SINUSITIS
     Route: 048
     Dates: start: 20110311
  17. COLACE [Concomitant]
     Indication: CONSTIPATION
     Route: 048
     Dates: start: 20110311, end: 20110320
  18. EXTRA STRENGTH TYLENOL [Concomitant]
     Indication: PYREXIA
     Route: 048
     Dates: start: 20110328, end: 20110330
  19. EXTRA STRENGTH TYLENOL [Concomitant]
     Indication: ABDOMINAL PAIN
     Route: 048
     Dates: start: 20110321
  20. LEUPROLIDE ACETATE [Concomitant]
     Indication: HORMONE THERAPY
     Route: 065
     Dates: start: 20081013
  21. VENLAFAXINE [Concomitant]
     Indication: HOT FLUSH
     Route: 048
     Dates: start: 20110331
  22. METOCLOPRAMIDE [Concomitant]
     Indication: NAUSEA
     Route: 048
     Dates: start: 20110328, end: 20110331
  23. LEUPROLIDE ACETATE [Concomitant]
     Indication: PROSTATE CANCER METASTATIC
     Route: 058
     Dates: start: 20100218
  24. EXTRA STRENGTH TYLENOL [Concomitant]
     Indication: PAIN
     Route: 048
     Dates: start: 20110321
  25. GRAVOL TAB [Concomitant]
     Indication: NAUSEA
     Route: 042
     Dates: start: 20110313, end: 20110313
  26. TORADOL [Concomitant]
     Indication: ABDOMINAL PAIN
     Route: 042
     Dates: start: 20110313, end: 20110313
  27. DICLOFENAC SODIUM [Concomitant]
     Indication: CARTILAGE INJURY
     Route: 061
     Dates: start: 20100605
  28. VITAMIN D [Concomitant]
     Indication: MEDICAL DIET
     Route: 047
     Dates: start: 20080101
  29. LANSOPRAZOLE [Concomitant]
     Indication: GASTROOESOPHAGEAL REFLUX DISEASE
     Route: 048
     Dates: start: 20110328, end: 20110401
  30. EXTRA STRENGTH TYLENOL [Concomitant]
     Route: 048
     Dates: start: 20110321
  31. NAPROXEN [Concomitant]
     Indication: ABDOMINAL PAIN
     Route: 048
     Dates: start: 20110313, end: 20110320
  32. ROSUVASTATIN [Concomitant]
     Indication: HYPERLIPIDAEMIA
     Route: 048
     Dates: start: 20070501

REACTIONS (1)
  - GASTRITIS [None]
